FAERS Safety Report 9296695 (Version 1)
Quarter: 2013Q2

REPORT INFORMATION
  Report Type: Spontaneous
  Country: GB (occurrence: GB)
  Receive Date: 20130517
  Receipt Date: 20130517
  Transmission Date: 20140414
  Serious: Yes (Other)
  Sender: FDA-Public Use
  Company Number: GB-PFIZER INC-2013146094

PATIENT
  Age: 55 Year
  Sex: Female
  Weight: 36 kg

DRUGS (9)
  1. LINEZOLID [Suspect]
     Indication: MYCOBACTERIUM ABSCESSUS INFECTION
     Dosage: 600 MG, 2X/DAY
     Route: 048
     Dates: start: 20130413, end: 20130414
  2. AMIKACIN SULFATE [Concomitant]
     Dosage: 600 MG, 1X/DAY
     Route: 042
     Dates: start: 20130322, end: 20130407
  3. AMIKACIN SULFATE [Concomitant]
     Dosage: 900 MG THRICE WEEKLY
     Route: 042
     Dates: start: 20130408
  4. ETHAMBUTOL [Concomitant]
     Dosage: 500 MG, 1X/DAY
     Dates: start: 20130419
  5. CLARITHROMYCIN [Concomitant]
     Dosage: 500 MG, 2X/DAY
     Route: 048
     Dates: start: 20130308
  6. SERETIDE [Concomitant]
     Dosage: 1 DF, 2X/DAY
  7. SPIRIVA [Concomitant]
     Dosage: 1 DF, 1X/DAY
  8. NUTRITIONAL SUPPLEMENT [Concomitant]
     Dosage: DAILY
  9. SALBUTAMOL [Concomitant]
     Indication: WHEEZING
     Dosage: TWO PUFFS. LONG TERM

REACTIONS (1)
  - Wheezing [Recovered/Resolved]
